FAERS Safety Report 12709202 (Version 1)
Quarter: 2016Q3

REPORT INFORMATION
  Report Type: Spontaneous
  Country: EC (occurrence: EC)
  Receive Date: 20160901
  Receipt Date: 20160901
  Transmission Date: 20161109
  Serious: Yes (Hospitalization, Other)
  Sender: FDA-Public Use
  Company Number: EC-BAYER-2016-163694

PATIENT
  Sex: Female

DRUGS (2)
  1. METFORMIN [Concomitant]
     Active Substance: METFORMIN HYDROCHLORIDE
  2. YASMIN [Suspect]
     Active Substance: DROSPIRENONE\ETHINYL ESTRADIOL
     Dosage: 1 DF, QD
     Route: 048
     Dates: start: 20130404

REACTIONS (5)
  - Dyspnoea [Unknown]
  - Deep vein thrombosis [None]
  - Pulmonary embolism [Unknown]
  - Deep vein thrombosis [Unknown]
  - Thrombosis [None]

NARRATIVE: CASE EVENT DATE: 2013
